FAERS Safety Report 5271557-6 (Version None)
Quarter: 2007Q1

REPORT INFORMATION
  Report Type: 
  Country: None (occurrence: None)
  Receive Date: 20070316
  Receipt Date: 20070305
  Transmission Date: 20070707
  Serious: Yes (Other)
  Sender: FDA-Public Use
  Company Number: GXKR2007US02265

PATIENT
  Age: 31 Year
  Sex: Female

DRUGS (13)
  1. RIFAMPICIN [Suspect]
     Indication: STAPHYLOCOCCAL INFECTION
     Dosage: SEE IMAGE
  2. LINEZOLID [Suspect]
     Indication: STAPHYLOCOCCAL INFECTION
     Dosage: SEE IMAGE
     Route: 042
  3. XIGRIS [Concomitant]
  4. NOREPINEPHRINE BITARTRATE [Concomitant]
  5. VASOPRESSIN AND ANALOGUES (NO INGREDIENTS/SUBSTANCES) [Concomitant]
  6. OXYCODONE HCL [Concomitant]
  7. SERTRALINE [Concomitant]
  8. CLINDAMYCIN [Concomitant]
  9. CASPOFUNGIN (CASPOFUNGIN) [Concomitant]
  10. FLUCONAZOLE [Concomitant]
  11. MEROPENEM (MEROPENEM) [Concomitant]
  12. LEVOFLOXACIN [Concomitant]
  13. HYDROXYCHLOROQUINE SULFATE [Concomitant]

REACTIONS (6)
  - DRUG INTERACTION [None]
  - DRUG LEVEL DECREASED [None]
  - ESCHERICHIA BACTERAEMIA [None]
  - HAEMODIALYSIS [None]
  - SYSTEMIC CANDIDA [None]
  - SYSTEMIC LUPUS ERYTHEMATOSUS [None]
